FAERS Safety Report 11774727 (Version 4)
Quarter: 2015Q4

REPORT INFORMATION
  Report Type: Spontaneous
  Country: PL (occurrence: PL)
  Receive Date: 20151124
  Receipt Date: 20151223
  Transmission Date: 20160304
  Serious: Yes (Other)
  Sender: FDA-Public Use
  Company Number: PL-PFIZER INC-2015389215

PATIENT
  Age: 81 Year
  Sex: Male

DRUGS (6)
  1. POLFENON [Concomitant]
     Active Substance: PROPAFENONE HYDROCHLORIDE
     Indication: ATRIAL FIBRILLATION
     Dosage: 300 MG, 3X/DAY
  2. CITAXIN [Concomitant]
     Indication: ANXIETY
     Dosage: 10 MG, DAILY
  3. RAMIPRIL. [Concomitant]
     Active Substance: RAMIPRIL
     Dosage: UNK
  4. SORTIS [Suspect]
     Active Substance: ATORVASTATIN
     Indication: PROPHYLAXIS
     Dosage: 40 MG, 1X/DAY
  5. TRITACE [Concomitant]
     Active Substance: RAMIPRIL
     Dosage: 1X/DAY HALF A TABLET, WHOLE TABLET AT A DOSE 2.5 MG
  6. PRADAXA [Concomitant]
     Active Substance: DABIGATRAN ETEXILATE MESYLATE
     Dosage: 110 MG, 2X/DAY

REACTIONS (5)
  - Blood pressure fluctuation [Recovered/Resolved]
  - Gastrointestinal sounds abnormal [Recovered/Resolved]
  - Sleep apnoea syndrome [Unknown]
  - Musculoskeletal stiffness [Not Recovered/Not Resolved]
  - Diarrhoea [Recovered/Resolved]
